FAERS Safety Report 7576179-X (Version None)
Quarter: 2011Q2

REPORT INFORMATION
  Report Type: 
  Country: None (occurrence: None)
  Receive Date: 20110623
  Receipt Date: 20110623
  Transmission Date: 20111010
  Serious: Yes (Other)
  Sender: FDA-Public Use
  Company Number: None

PATIENT
  Age: 51 Year
  Sex: Female
  Weight: 64.6 kg

DRUGS (2)
  1. ACETAMINOPHEN [Suspect]
     Dosage: 500MG, 2 TABLETS EVERY 4 HOURS ORAL
     Route: 048
  2. LOSARTAN POTASSIUM [Suspect]
     Indication: HYPERTENSION
     Dosage: LOSARTAN 25MG DAILY ORAL
     Route: 048
     Dates: start: 20110308, end: 20110518

REACTIONS (8)
  - JAUNDICE [None]
  - ALANINE AMINOTRANSFERASE INCREASED [None]
  - MYALGIA [None]
  - HEPATIC STEATOSIS [None]
  - HEPATIC CIRRHOSIS [None]
  - OCULAR ICTERUS [None]
  - ASPARTATE AMINOTRANSFERASE INCREASED [None]
  - BLOOD BILIRUBIN INCREASED [None]
